FAERS Safety Report 26048140 (Version 1)
Quarter: 2025Q4

REPORT INFORMATION
  Report Type: Spontaneous
  Country: US (occurrence: US)
  Receive Date: 20251114
  Receipt Date: 20251114
  Transmission Date: 20260117
  Serious: Yes (Hospitalization, Other)
  Sender: PURDUE
  Company Number: US-PURDUE PHARMA-USA-2025-0322061

PATIENT
  Age: 54 Year
  Sex: Female

DRUGS (5)
  1. BUPRENORPHINE [Suspect]
     Active Substance: BUPRENORPHINE
     Indication: Drug withdrawal syndrome
     Dosage: 2 MILLIGRAM
     Route: 060
  2. BUPRENORPHINE [Suspect]
     Active Substance: BUPRENORPHINE
     Dosage: 4 MILLIGRAM (3H LATER)
     Route: 060
  3. BUPRENORPHINE [Suspect]
     Active Substance: BUPRENORPHINE
     Dosage: 8 MILLIGRAM, BID (BY DAY 3 OF ADMISSION)
     Route: 060
  4. CLONIDINE [Suspect]
     Active Substance: CLONIDINE
     Indication: Drug withdrawal syndrome
     Dosage: 0.1 MILLIGRAM, PRN
     Route: 065
  5. HERBALS\MITRAGYNINE [Suspect]
     Active Substance: HERBALS\MITRAGYNINE
     Indication: Drug withdrawal syndrome
     Dosage: 30 MILLIGRAM, DAILY (LAST CONSUMPTION UNKNOWN)
     Route: 048

REACTIONS (4)
  - Acute kidney injury [Unknown]
  - Nausea [Recovered/Resolved]
  - Vomiting [Recovered/Resolved]
  - Drug withdrawal syndrome [Recovered/Resolved]
